FAERS Safety Report 21113730 (Version 3)
Quarter: 2022Q3

REPORT INFORMATION
  Report Type: Report from Study
  Country: US (occurrence: US)
  Receive Date: 20220721
  Receipt Date: 20220921
  Transmission Date: 20221027
  Serious: Yes (Hospitalization)
  Sender: FDA-Public Use
  Company Number: US-JNJFOC-20220730278

PATIENT
  Age: 61 Year
  Sex: Male
  Weight: 63.560 kg

DRUGS (6)
  1. DARATUMUMAB [Suspect]
     Active Substance: DARATUMUMAB
     Indication: Plasma cell myeloma
     Dosage: MEDICATION KIT NUMBER: 108719
     Route: 058
     Dates: start: 20220526, end: 20220706
  2. POMALIDOMIDE [Suspect]
     Active Substance: POMALIDOMIDE
     Indication: Plasma cell myeloma
     Route: 048
     Dates: start: 20220627, end: 20220711
  3. ALLOPURINOL [Concomitant]
     Active Substance: ALLOPURINOL
  4. ACYCLOVIR [Concomitant]
     Active Substance: ACYCLOVIR
  5. FLUCONAZOLE [Concomitant]
     Active Substance: FLUCONAZOLE
  6. MEPRON [Concomitant]
     Active Substance: ATOVAQUONE

REACTIONS (1)
  - Bacteraemia [Recovered/Resolved]

NARRATIVE: CASE EVENT DATE: 20220713
